FAERS Safety Report 20017430 (Version 1)
Quarter: 2021Q4

REPORT INFORMATION
  Report Type: Spontaneous
  Country: FR (occurrence: FR)
  Receive Date: 20211030
  Receipt Date: 20211030
  Transmission Date: 20220304
  Serious: Yes (Hospitalization)
  Sender: FDA-Public Use
  Company Number: None

PATIENT
  Age: 60 Year
  Sex: Male
  Weight: 118 kg

DRUGS (12)
  1. DIAZEPAM [Suspect]
     Active Substance: DIAZEPAM
     Indication: Prophylaxis against alcoholic withdrawal syndrome
     Dosage: 15 MILLIGRAM DAILY; 5 MGX3 / D , THERAPY START DATE : NASK
     Route: 048
     Dates: end: 20210507
  2. TERALITHE [Suspect]
     Active Substance: LITHIUM CARBONATE
     Indication: Major depression
     Dosage: 1200 MILLIGRAM DAILY; PROLONGED-RELEASE SCORED TABLET , 400MG X 3 TABLETS AT BEDTIME , THERAPY START
     Route: 048
     Dates: end: 20210507
  3. METFORMIN HYDROCHLORIDE [Concomitant]
     Active Substance: METFORMIN HYDROCHLORIDE
  4. NEBIVOLOL [Concomitant]
     Active Substance: NEBIVOLOL
  5. DULAGLUTIDE [Concomitant]
     Active Substance: DULAGLUTIDE
  6. ATORVASTATIN [Concomitant]
     Active Substance: ATORVASTATIN
  7. LAMALINE [Concomitant]
  8. HYDROCHLOROTHIAZIDE [Concomitant]
     Active Substance: HYDROCHLOROTHIAZIDE
  9. VALSARTAN [Concomitant]
     Active Substance: VALSARTAN
  10. PANTOPRAZOLE [Concomitant]
     Active Substance: PANTOPRAZOLE
  11. AMLODIPINE [Concomitant]
     Active Substance: AMLODIPINE BESYLATE
  12. BRINTELLIX [Concomitant]
     Active Substance: VORTIOXETINE HYDROBROMIDE

REACTIONS (6)
  - Gait disturbance [Recovered/Resolved]
  - Tremor [Recovered/Resolved]
  - Antipsychotic drug level increased [Recovered/Resolved]
  - Altered state of consciousness [Recovered/Resolved]
  - Vertigo [Recovered/Resolved]
  - Balance disorder [Recovered/Resolved]

NARRATIVE: CASE EVENT DATE: 20210427
